FAERS Safety Report 7026514-6 (Version None)
Quarter: 2010Q4

REPORT INFORMATION
  Report Type: 
  Country: None (occurrence: None)
  Receive Date: 20101004
  Receipt Date: 20100929
  Transmission Date: 20110411
  Serious: No
  Sender: FDA-Public Use
  Company Number: US-PFIZER INC-2010117551

PATIENT
  Sex: Female
  Weight: 90.7 kg

DRUGS (17)
  1. CHANTIX [Suspect]
     Indication: SMOKING CESSATION THERAPY
     Dosage: UNK
     Route: 048
     Dates: start: 20100912
  2. ABILIFY [Concomitant]
     Dosage: 30 MG, 1X/DAY
  3. CLONIDINE [Concomitant]
     Dosage: 0.3 MG, 3X/DAY
  4. COREG [Concomitant]
     Dosage: 6.25 MG, 2X/DAY
  5. COZAAR [Concomitant]
     Dosage: 50 MG, 1X/DAY
  6. GLIPIZIDE [Concomitant]
     Dosage: 10 MG, 1X/DAY
  7. KLONOPIN [Concomitant]
     Dosage: 0.5 MG, 4X/DAY
  8. LACTULOSE [Concomitant]
     Dosage: 2 TABLESPOONS ONCE A DAY
  9. LASIX [Concomitant]
     Dosage: 40 MG, 1X/DAY
  10. LORATADINE [Concomitant]
     Dosage: 10 MG, 1X/DAY
  11. METFORMIN [Concomitant]
     Dosage: 1000 MG, 2X/DAY
  12. NIFEDICAL [Concomitant]
     Dosage: 60 MG, 1X/DAY
  13. RESTORIL [Concomitant]
     Dosage: 45 MG, 1X/DAY
  14. SIMVASTATIN [Concomitant]
     Dosage: 40 MG, 1X/DAY
  15. MONOPRIL [Concomitant]
     Dosage: 10 MG, 1X/DAY
  16. PROZAC [Concomitant]
     Dosage: 40 MG, 1X/DAY
  17. VICODIN [Concomitant]
     Indication: PAIN
     Dosage: UNK, AS NEEDED

REACTIONS (1)
  - NERVOUSNESS [None]
